FAERS Safety Report 18532955 (Version 1)
Quarter: 2020Q4

REPORT INFORMATION
  Report Type: Spontaneous
  Country: US (occurrence: US)
  Receive Date: 20201120
  Receipt Date: 20201120
  Transmission Date: 20210114
  Serious: Yes (Other)
  Sender: FDA-Public Use
  Company Number: None

PATIENT
  Age: 68 Year
  Sex: Male
  Weight: 120.3 kg

DRUGS (11)
  1. ZINC SULFATE. [Concomitant]
     Active Substance: ZINC SULFATE
     Dates: start: 20201116
  2. CISATRACURIUM. [Concomitant]
     Active Substance: CISATRACURIUM
     Dates: start: 20201118
  3. FENTANYL. [Concomitant]
     Active Substance: FENTANYL
     Dates: start: 20201117
  4. ENOXAPARIN [Concomitant]
     Active Substance: ENOXAPARIN
     Dates: start: 20201118
  5. DEXAMETHASONE. [Concomitant]
     Active Substance: DEXAMETHASONE
     Dates: start: 20201117
  6. MIDAZOLAM. [Concomitant]
     Active Substance: MIDAZOLAM
     Dates: start: 20201117
  7. ASCORBIC ACID. [Concomitant]
     Active Substance: ASCORBIC ACID
     Dates: start: 20201116, end: 20201120
  8. PROPOFOL. [Concomitant]
     Active Substance: PROPOFOL
     Dates: start: 20201117, end: 20201119
  9. REMDESIVIR. [Suspect]
     Active Substance: REMDESIVIR
     Indication: SARS-COV-2 TEST POSITIVE
     Route: 041
     Dates: start: 20201115, end: 20201119
  10. EPOPROSTENOL (INHALED) [Concomitant]
     Dates: start: 20201117
  11. THIAMINE. [Concomitant]
     Active Substance: THIAMINE
     Dates: start: 20201116

REACTIONS (1)
  - Bradycardia [None]

NARRATIVE: CASE EVENT DATE: 20201118
